FAERS Safety Report 7381428-7 (Version None)
Quarter: 2011Q1

REPORT INFORMATION
  Report Type: 
  Country: None (occurrence: None)
  Receive Date: 20110324
  Receipt Date: 20110324
  Transmission Date: 20110831
  Serious: Yes (Other)
  Sender: FDA-Public Use
  Company Number: None

PATIENT
  Sex: Male
  Weight: 81.6475 kg

DRUGS (2)
  1. FELODIPINE [Suspect]
     Indication: BLOOD PRESSURE
     Dosage: 10 MG PM 1 (M 236 PINK)
  2. FELODIPINE [Suspect]
     Indication: BLOOD PRESSURE
     Dosage: 10 MG PM 1 (M F13 BLUE BP)

REACTIONS (5)
  - EYE DISORDER [None]
  - HEADACHE [None]
  - PARAESTHESIA [None]
  - MUSCLE SPASMS [None]
  - MOVEMENT DISORDER [None]
